FAERS Safety Report 9770203 (Version 1)
Quarter: 2013Q4

REPORT INFORMATION
  Report Type: Other
  Country: FR (occurrence: FR)
  Receive Date: 20131218
  Receipt Date: 20131218
  Transmission Date: 20140711
  Serious: Yes (Life-Threatening)
  Sender: FDA-Public Use
  Company Number: FR-TAKEDA-LTI2013A00149

PATIENT
  Sex: 0

DRUGS (19)
  1. OGASTORO 15 MG [Suspect]
     Indication: PRODUCT USED FOR UNKNOWN INDICATION
     Dosage: 15 MG, QD
     Route: 042
     Dates: start: 20130627
  2. ONDANSETRON [Suspect]
     Indication: PRODUCT USED FOR UNKNOWN INDICATION
     Dosage: 2 MG/ML, DAILY
     Route: 042
     Dates: start: 20130627
  3. PRIMPERAN [Suspect]
     Indication: PRODUCT USED FOR UNKNOWN INDICATION
     Dosage: UNK UNK, TID
     Route: 042
     Dates: start: 20130627
  4. PRIMPERAN [Suspect]
     Dosage: 5000 IU, QD
     Route: 042
     Dates: start: 20130627
  5. HEPARINE CHOAY [Suspect]
     Indication: PRODUCT USED FOR UNKNOWN INDICATION
     Dosage: 6000 IU, QD
     Route: 042
     Dates: start: 20130627
  6. HEPARINE CHOAY [Suspect]
     Dosage: 5000 IU, QD
     Route: 042
     Dates: start: 20130627
  7. CYTARABINE [Suspect]
     Indication: ACUTE MYELOID LEUKAEMIA
     Dosage: 50 UNK, UNK
     Route: 042
     Dates: start: 20130627, end: 20130629
  8. ZAVEDOS [Suspect]
     Indication: ACUTE MYELOID LEUKAEMIA
     Dosage: UNK
     Dates: start: 20130627, end: 20130701
  9. PHYTOMENADIONE [Suspect]
     Indication: PRODUCT USED FOR UNKNOWN INDICATION
     Dosage: 10 MG, DAILY
     Route: 065
     Dates: start: 20130627
  10. PIPERACILLINE/TAZOBACTAM [Suspect]
     Indication: PRODUCT USED FOR UNKNOWN INDICATION
     Dosage: 4 G, TID
     Route: 042
     Dates: start: 20130627
  11. PARACETAMOL [Suspect]
     Indication: PRODUCT USED FOR UNKNOWN INDICATION
     Dosage: 500 G, UNK
     Route: 042
     Dates: start: 20130627
  12. ACUPAN [Suspect]
     Indication: PRODUCT USED FOR UNKNOWN INDICATION
     Dosage: UNK,
     Route: 042
     Dates: start: 20130627
  13. ACUPAN [Suspect]
     Dosage: 5000 IU, DAILY
     Route: 042
     Dates: start: 20130627
  14. BACTRIM [Suspect]
     Indication: PRODUCT USED FOR UNKNOWN INDICATION
     Dosage: 6000 IU, UNK
     Route: 048
     Dates: start: 20130627
  15. BACTRIM [Suspect]
     Dosage: 5000 IU, DAILY
     Route: 042
     Dates: start: 20130627
  16. VALACICLOVIR ARROW GENERIQUES [Suspect]
     Indication: PRODUCT USED FOR UNKNOWN INDICATION
     Dosage: 500 MG, DAILY
     Route: 048
     Dates: start: 20130627
  17. VALACICLOVIR ARROW GENERIQUES [Suspect]
     Dosage: UNK UNK,
     Route: 042
     Dates: start: 20130627
  18. VERCYTE [Concomitant]
     Indication: POLYCYTHAEMIA VERA
     Dates: end: 201305
  19. HYDREA [Concomitant]
     Indication: POLYCYTHAEMIA VERA

REACTIONS (1)
  - Pulmonary alveolar haemorrhage [Recovered/Resolved]
